FAERS Safety Report 12521941 (Version 2)
Quarter: 2016Q3

REPORT INFORMATION
  Report Type: Spontaneous
  Country: ZA (occurrence: ZA)
  Receive Date: 20160701
  Receipt Date: 20160719
  Transmission Date: 20161109
  Serious: Yes (Hospitalization, Other)
  Sender: FDA-Public Use
  Company Number: ZA-BAYER-2016-121649

PATIENT
  Sex: Male

DRUGS (1)
  1. STIVARGA [Suspect]
     Active Substance: REGORAFENIB
     Indication: COLORECTAL CANCER METASTATIC
     Route: 048

REACTIONS (7)
  - Stomatitis [None]
  - Weight decreased [None]
  - Blister infected [None]
  - Large intestine perforation [None]
  - Hypophagia [None]
  - Tumour perforation [None]
  - Palmar-plantar erythrodysaesthesia syndrome [None]
